FAERS Safety Report 7836063-0 (Version None)
Quarter: 2011Q4

REPORT INFORMATION
  Report Type: 
  Country: None (occurrence: None)
  Receive Date: 20111024
  Receipt Date: 20111018
  Transmission Date: 20120403
  Serious: Yes (Hospitalization)
  Sender: FDA-Public Use
  Company Number: PT-B.I. PHARMACEUTICALS,INC./RIDGEFIELD-2011-DE-05658DE

PATIENT
  Sex: Male
  Weight: 75 kg

DRUGS (3)
  1. BI 201335 [Suspect]
     Indication: HEPATITIS C
     Dosage: 240 MG
     Route: 048
     Dates: start: 20110923
  2. PEG-INTRON [Suspect]
     Indication: HEPATITIS C
     Dosage: 180 MCG
     Route: 058
     Dates: start: 20110923
  3. RIBAVIRIN [Suspect]
     Indication: HEPATITIS C
     Dosage: 1200 MG
     Route: 048
     Dates: start: 20110923

REACTIONS (9)
  - PYREXIA [None]
  - NAUSEA [None]
  - VOMITING [None]
  - ANXIETY [None]
  - DIARRHOEA [None]
  - HYPERBILIRUBINAEMIA [None]
  - ABDOMINAL PAIN [None]
  - PNEUMONIA [None]
  - BLOOD LACTATE DEHYDROGENASE INCREASED [None]
